FAERS Safety Report 7085688-1 (Version None)
Quarter: 2010Q4

REPORT INFORMATION
  Report Type: 
  Country: None (occurrence: None)
  Receive Date: 20101105
  Receipt Date: 20101103
  Transmission Date: 20110411
  Serious: Yes (Hospitalization)
  Sender: FDA-Public Use
  Company Number: US-EISAI INC.-E2007-00690-CLI-US

PATIENT
  Sex: Female
  Weight: 75 kg

DRUGS (15)
  1. E2007 (PERAMPANEL) [Suspect]
     Indication: EPILEPSY
     Dosage: TITRATION PHASE
     Route: 048
     Dates: start: 20091030, end: 20100302
  2. E2007 (PERAMPANEL) [Suspect]
     Route: 048
     Dates: start: 20100303, end: 20100714
  3. E2007 (PERAMPANEL) [Suspect]
     Route: 048
     Dates: start: 20100715, end: 20100822
  4. ZONEGRAN [Concomitant]
     Indication: EPILEPSY
     Route: 048
     Dates: start: 20080501
  5. ESTROGEN [Concomitant]
     Route: 061
     Dates: start: 20100422
  6. IMODIUM A-D [Concomitant]
     Route: 048
     Dates: start: 19910101
  7. CASCARA TAB [Concomitant]
     Indication: CONSTIPATION
     Route: 048
     Dates: start: 20080101
  8. PHENERGAN [Concomitant]
     Indication: NAUSEA
     Route: 048
     Dates: start: 20041116
  9. CYMBALTA [Concomitant]
     Indication: DEPRESSION
     Route: 048
     Dates: start: 20081027, end: 20100715
  10. TRAZODONE [Concomitant]
     Indication: ANXIETY
     Route: 048
     Dates: start: 20080423, end: 20100720
  11. LUNESTA [Concomitant]
     Indication: INSOMNIA
     Route: 048
     Dates: start: 20090507, end: 20100830
  12. ADVIL [Concomitant]
     Indication: FIBROMYALGIA
     Route: 048
     Dates: start: 20080101
  13. ADVIL [Concomitant]
     Indication: MIGRAINE
  14. XANAX [Concomitant]
     Indication: ANXIETY
     Route: 048
     Dates: start: 20100416
  15. CLARITIN-D [Concomitant]
     Indication: SEASONAL ALLERGY
     Route: 048
     Dates: start: 19990101

REACTIONS (5)
  - DEPRESSION [None]
  - HOMICIDAL IDEATION [None]
  - NEPHROLITHIASIS [None]
  - SUICIDAL IDEATION [None]
  - URINARY TRACT INFECTION [None]
